FAERS Safety Report 14735804 (Version 1)
Quarter: 2018Q2

REPORT INFORMATION
  Report Type: Spontaneous
  Country: US (occurrence: US)
  Receive Date: 20180409
  Receipt Date: 20180409
  Transmission Date: 20180711
  Serious: No
  Sender: FDA-Public Use
  Company Number: US-BAYER-2018-062924

PATIENT
  Sex: Male

DRUGS (1)
  1. MAGNEVIST [Suspect]
     Active Substance: GADOPENTETATE DIMEGLUMINE
     Indication: NUCLEAR MAGNETIC RESONANCE IMAGING
     Dosage: UNK, ONCE
     Route: 042
     Dates: start: 20180329

REACTIONS (8)
  - Eye pruritus [None]
  - Dyspnoea [None]
  - Eye paraesthesia [None]
  - Sneezing [None]
  - Nausea [None]
  - Retching [None]
  - Lacrimation increased [None]
  - Abnormal sensation in eye [None]
